FAERS Safety Report 12386200 (Version 1)
Quarter: 2016Q2

REPORT INFORMATION
  Report Type: Spontaneous
  Country: US (occurrence: US)
  Receive Date: 20160519
  Receipt Date: 20160519
  Transmission Date: 20160815
  Serious: Yes (Other)
  Sender: FDA-Public Use
  Company Number: US-MDT-ADR-2015-02310

PATIENT
  Age: 48 Year
  Sex: Male

DRUGS (15)
  1. ELAVIL [Suspect]
     Active Substance: AMITRIPTYLINE HYDROCHLORIDE
     Route: 065
  2. VALIUM [Suspect]
     Active Substance: DIAZEPAM
     Route: 065
  3. INDERAL [Suspect]
     Active Substance: PROPRANOLOL HYDROCHLORIDE
     Route: 065
  4. RESTORIL [Suspect]
     Active Substance: TEMAZEPAM
     Route: 065
  5. COMPOUNDED BACLOFEN [Suspect]
     Active Substance: BACLOFEN
     Dosage: 3.02 MCG/DAY
     Route: 037
  6. NEXIUM [Suspect]
     Active Substance: ESOMEPRAZOLE MAGNESIUM
     Route: 065
  7. ANTIVERT [Suspect]
     Active Substance: MECLIZINE HYDROCHLORIDE
     Route: 065
  8. ROBAXIN [Suspect]
     Active Substance: METHOCARBAMOL
     Route: 065
  9. BACLOFEN. [Suspect]
     Active Substance: BACLOFEN
     Route: 048
  10. OXYCONTIN [Suspect]
     Active Substance: OXYCODONE HYDROCHLORIDE
     Route: 065
  11. OXYCODONE [Suspect]
     Active Substance: OXYCODONE
     Route: 065
  12. ZOLOFT [Suspect]
     Active Substance: SERTRALINE HYDROCHLORIDE
     Route: 065
  13. COMPOUNDED BACLOFEN [Suspect]
     Active Substance: BACLOFEN
     Dosage: 59.95 MCG/DAY
     Route: 037
  14. REMICADE [Suspect]
     Active Substance: INFLIXIMAB
     Route: 065
  15. MAXALT [Suspect]
     Active Substance: RIZATRIPTAN BENZOATE
     Route: 065

REACTIONS (3)
  - Muscle tightness [Unknown]
  - Muscle spasticity [Unknown]
  - Device failure [None]

NARRATIVE: CASE EVENT DATE: 20151104
